FAERS Safety Report 4551258-X (Version None)
Quarter: 2005Q1

REPORT INFORMATION
  Report Type: 
  Country: None (occurrence: None)
  Receive Date: 20050106
  Receipt Date: 20041221
  Transmission Date: 20050727
  Serious: Yes (Life-Threatening, Hospitalization, Other)
  Sender: FDA-Public Use
  Company Number: JP_041205495

PATIENT
  Age: 64 Year
  Sex: Male
  Weight: 67 kg

DRUGS (2)
  1. GEMZAR [Suspect]
     Indication: PANCREATIC CARCINOMA STAGE IV
     Dosage: 1000MG/M2 OTHER
     Dates: start: 20030519, end: 20030603
  2. MS CONTIN [Concomitant]

REACTIONS (7)
  - CONDITION AGGRAVATED [None]
  - HAEMATOMA [None]
  - HAEMOGLOBIN DECREASED [None]
  - JAUNDICE CHOLESTATIC [None]
  - MALIGNANT NEOPLASM PROGRESSION [None]
  - PYREXIA [None]
  - VENOUS THROMBOSIS LIMB [None]
